FAERS Safety Report 25596562 (Version 1)
Quarter: 2025Q3

REPORT INFORMATION
  Report Type: Spontaneous
  Country: TW (occurrence: TW)
  Receive Date: 20250723
  Receipt Date: 20250723
  Transmission Date: 20251020
  Serious: Yes (Other)
  Sender: PFIZER
  Company Number: TW-PFIZER INC-PV202500087813

PATIENT
  Age: 75 Year
  Sex: Female
  Weight: 46.5 kg

DRUGS (6)
  1. ATIVAN [Suspect]
     Active Substance: LORAZEPAM
     Indication: Mental disorder
     Dosage: 1 DF, 3X/DAY
     Route: 048
     Dates: start: 20250704, end: 20250704
  2. LORAZEPAM [Suspect]
     Active Substance: LORAZEPAM
     Indication: Mental disorder
     Dosage: 1 DF, 1X/DAY
     Route: 048
     Dates: start: 20250704, end: 20250704
  3. ATIVAN [Concomitant]
     Active Substance: LORAZEPAM
     Indication: Mental disorder
     Dosage: 1 DF, 2X/DAY
     Route: 048
     Dates: start: 20250704, end: 20250710
  4. UTAPINE [Concomitant]
     Indication: Mental disorder
     Dosage: 1 DF, 1X/DAY
     Route: 048
     Dates: start: 20250704, end: 20250710
  5. REXULTI [Concomitant]
     Active Substance: BREXPIPRAZOLE
     Indication: Mental disorder
     Dosage: 1 DF, 1X/DAY
     Route: 048
     Dates: start: 20250710, end: 20250710
  6. KENTAMIN [Concomitant]
     Indication: Mental disorder
     Dosage: 1 DF, 3X/DAY
     Route: 048
     Dates: start: 20250704, end: 20250710

REACTIONS (3)
  - Fatigue [Recovered/Resolved]
  - Muscular weakness [Recovered/Resolved]
  - Fall [Recovered/Resolved]

NARRATIVE: CASE EVENT DATE: 20250705
